FAERS Safety Report 7124367-9 (Version None)
Quarter: 2010Q4

REPORT INFORMATION
  Report Type: 
  Country: None (occurrence: None)
  Receive Date: 20101126
  Receipt Date: 20101123
  Transmission Date: 20110411
  Serious: Yes (Death)
  Sender: FDA-Public Use
  Company Number: PHHY2010US79872

PATIENT
  Sex: Female
  Weight: 51 kg

DRUGS (1)
  1. EXJADE [Suspect]
     Indication: MYELOID LEUKAEMIA
     Dosage: 750 MG/DAY
     Route: 048
     Dates: start: 20100610, end: 20100901

REACTIONS (1)
  - DEATH [None]
